FAERS Safety Report 18506490 (Version 2)
Quarter: 2020Q4

REPORT INFORMATION
  Report Type: Spontaneous
  Country: US (occurrence: US)
  Receive Date: 20201116
  Receipt Date: 20201222
  Transmission Date: 20210114
  Serious: Yes (Hospitalization, Other)
  Sender: FDA-Public Use
  Company Number: US-BAYER-2020-241183

PATIENT
  Age: 52 Year
  Sex: Male

DRUGS (2)
  1. KOGENATE FS [Suspect]
     Active Substance: ANTIHEMOPHILIC FACTOR, HUMAN RECOMBINANT
     Dosage: 4700 IU
     Route: 042
  2. KOGENATE FS [Suspect]
     Active Substance: ANTIHEMOPHILIC FACTOR, HUMAN RECOMBINANT
     Dosage: 4700 IU, INFUSED 1 DOSE OF FACTOR RO RESOLVE
     Route: 031

REACTIONS (4)
  - Fall [None]
  - Limb injury [None]
  - Joint injury [None]
  - Haemorrhage [Unknown]

NARRATIVE: CASE EVENT DATE: 20201101
